FAERS Safety Report 4573506-2 (Version None)
Quarter: 2005Q1

REPORT INFORMATION
  Report Type: 
  Country: None (occurrence: None)
  Receive Date: 20050208
  Receipt Date: 20040902
  Transmission Date: 20050727
  Serious: No
  Sender: FDA-Public Use
  Company Number: US-GLAXOSMITHKLINE-A0524485A

PATIENT
  Sex: Male

DRUGS (4)
  1. PAROXETINE HCL [Suspect]
     Indication: DEPRESSION
     Dosage: 10MG PER DAY
     Route: 048
  2. XANAX [Concomitant]
  3. ZYRTEC [Concomitant]
  4. NEXIUM [Concomitant]

REACTIONS (4)
  - DISORIENTATION [None]
  - FEELING ABNORMAL [None]
  - FEELING JITTERY [None]
  - YAWNING [None]
